FAERS Safety Report 7757893-X (Version None)
Quarter: 2011Q3

REPORT INFORMATION
  Report Type: 
  Country: None (occurrence: None)
  Receive Date: 20110918
  Receipt Date: 20110906
  Transmission Date: 20111222
  Serious: Yes (Death)
  Sender: FDA-Public Use
  Company Number: US-BRISTOL-MYERS SQUIBB COMPANY-16066466

PATIENT

DRUGS (2)
  1. CISPLATIN [Suspect]
     Indication: BRAIN NEOPLASM MALIGNANT
     Dosage: ROUTE:INTRACAROTID  1DF:60-120MG/SQ.M REPEATED 4 WKS INTERVAL
  2. MANNITOL [Concomitant]
     Dosage: 1DF:10G BEFORE CISPLATIN INF 40G DURING CISPLATIN INFUSION
     Route: 042

REACTIONS (1)
  - DEATH [None]
